FAERS Safety Report 24964024 (Version 1)
Quarter: 2025Q1

REPORT INFORMATION
  Report Type: Spontaneous
  Country: JP (occurrence: JP)
  Receive Date: 20250213
  Receipt Date: 20250213
  Transmission Date: 20250408
  Serious: Yes (Other)
  Sender: Phathom Pharmaceuticals
  Company Number: JP-PHATHOM PHARMACEUTICALS INC.-2025PHT00236

PATIENT
  Age: 6 Decade
  Sex: Male

DRUGS (5)
  1. VONOPRAZAN FUMARATE [Suspect]
     Active Substance: VONOPRAZAN FUMARATE
     Indication: Product used for unknown indication
     Route: 065
  2. SITAGLIPTIN [Suspect]
     Active Substance: SITAGLIPTIN
     Indication: Product used for unknown indication
     Route: 065
  3. BUFORMIN [Suspect]
     Active Substance: BUFORMIN
     Indication: Product used for unknown indication
  4. SHAKUYAKUKANZOTO [Suspect]
     Active Substance: HERBALS
     Indication: Product used for unknown indication
  5. MONTELUKAST [Suspect]
     Active Substance: MONTELUKAST
     Indication: Product used for unknown indication

REACTIONS (1)
  - Cardiac failure [Unknown]
